FAERS Safety Report 7275131-1 (Version None)
Quarter: 2011Q1

REPORT INFORMATION
  Report Type: 
  Country: None (occurrence: None)
  Receive Date: 20110204
  Receipt Date: 20110124
  Transmission Date: 20110831
  Serious: Yes (Hospitalization)
  Sender: FDA-Public Use
  Company Number: PHHY2011SE05555

PATIENT
  Sex: Male

DRUGS (7)
  1. KALCIPOS-D [Concomitant]
     Dosage: 500 MG/400
  2. BETAPRED [Concomitant]
     Dosage: 0.5 MG, UNK
  3. OPTINATE [Concomitant]
     Dosage: 30 MG, UNK
  4. TEMODAL [Concomitant]
  5. OMEPRAZOLE [Concomitant]
  6. ZOFRAN [Concomitant]
     Dosage: 4 MG, UNK
  7. TEGRETOL [Suspect]
     Dosage: 200 MG, UNK
     Route: 048
     Dates: end: 20101026

REACTIONS (4)
  - ALANINE AMINOTRANSFERASE INCREASED [None]
  - GAMMA-GLUTAMYLTRANSFERASE INCREASED [None]
  - C-REACTIVE PROTEIN INCREASED [None]
  - HEPATIC ENZYME INCREASED [None]
